FAERS Safety Report 4318009-5 (Version None)
Quarter: 2004Q1

REPORT INFORMATION
  Report Type: 
  Country: None (occurrence: None)
  Receive Date: 20040316
  Receipt Date: 20040304
  Transmission Date: 20041129
  Serious: Yes (Hospitalization)
  Sender: FDA-Public Use
  Company Number: WAES 0403SWE00010

PATIENT
  Age: 73 Year
  Sex: Female

DRUGS (5)
  1. FOSAMAX [Suspect]
     Indication: OSTEOPOROSIS
     Route: 048
     Dates: start: 20021001, end: 20031223
  2. CALCIUM CARBONATE AND CHOLECALCIFEROL [Concomitant]
  3. FOLIC ACID [Concomitant]
  4. METHOTREXATE [Concomitant]
  5. ROFECOXIB [Concomitant]

REACTIONS (1)
  - GRAND MAL CONVULSION [None]
